FAERS Safety Report 5467190-3 (Version None)
Quarter: 2007Q3

REPORT INFORMATION
  Report Type: 
  Country: None (occurrence: None)
  Receive Date: 20070925
  Receipt Date: 20070914
  Transmission Date: 20080115
  Serious: Yes (Hospitalization)
  Sender: FDA-Public Use
  Company Number: FR-ROCHE-517789

PATIENT
  Age: 48 Year
  Sex: Male
  Weight: 80 kg

DRUGS (7)
  1. CYMEVAN [Suspect]
     Indication: DRUG USE FOR UNKNOWN INDICATION
     Dosage: DOSAGE3: 350 KIU.
     Route: 042
     Dates: start: 20070808, end: 20070821
  2. ROVALCYTE [Suspect]
     Indication: DRUG USE FOR UNKNOWN INDICATION
     Route: 048
     Dates: start: 20070822, end: 20070827
  3. INIPOMP [Suspect]
     Indication: DRUG USE FOR UNKNOWN INDICATION
     Route: 048
     Dates: start: 20070807, end: 20070821
  4. RIFADIN [Suspect]
     Indication: DRUG USE FOR UNKNOWN INDICATION
     Route: 048
     Dates: start: 20070720, end: 20070821
  5. RIMIFON [Suspect]
     Indication: DRUG USE FOR UNKNOWN INDICATION
     Route: 048
     Dates: start: 20070720, end: 20070818
  6. PYRAZINAMIDE [Concomitant]
     Dates: start: 20070720, end: 20070815
  7. ETHAMBUTOL [Concomitant]
     Dates: start: 20070720

REACTIONS (3)
  - CYTOLYTIC HEPATITIS [None]
  - GAMMA-GLUTAMYLTRANSFERASE INCREASED [None]
  - VOMITING [None]
